FAERS Safety Report 13064161 (Version 3)
Quarter: 2018Q3

REPORT INFORMATION
  Report Type: Spontaneous
  Country: US (occurrence: US)
  Receive Date: 20161227
  Receipt Date: 20180809
  Transmission Date: 20181010
  Serious: Yes (Hospitalization, Other)
  Sender: FDA-Public Use
  Company Number: US-AMGEN-USASP2016164129

PATIENT
  Age: 70 Year
  Sex: Male
  Weight: 100.2 kg

DRUGS (3)
  1. REPATHA [Suspect]
     Active Substance: EVOLOCUMAB
     Indication: CAROTID ARTERY STENOSIS
  2. REPATHA [Suspect]
     Active Substance: EVOLOCUMAB
     Indication: HYPERLIPIDAEMIA
     Dosage: 140 MG, UNK
     Route: 058
     Dates: start: 20161007, end: 20161024
  3. HYDROCODONE [Concomitant]
     Active Substance: HYDROCODONE
     Indication: PAIN

REACTIONS (15)
  - Injection site bruising [Recovered/Resolved]
  - Drug hypersensitivity [Recovered/Resolved]
  - Oedema peripheral [Recovered/Resolved]
  - Nausea [Recovering/Resolving]
  - Pain in jaw [Recovering/Resolving]
  - Abdominal pain [Recovering/Resolving]
  - Localised infection [Recovered/Resolved]
  - Hypoaesthesia [Not Recovered/Not Resolved]
  - Ear pain [Recovering/Resolving]
  - Injection site erythema [Recovered/Resolved]
  - Liver disorder [Unknown]
  - Influenza [Recovered/Resolved]
  - Vision blurred [Recovered/Resolved]
  - Facial pain [Recovering/Resolving]
  - Back pain [Recovered/Resolved]

NARRATIVE: CASE EVENT DATE: 20161007
